FAERS Safety Report 6143905-6 (Version None)
Quarter: 2009Q2

REPORT INFORMATION
  Report Type: 
  Country: None (occurrence: None)
  Receive Date: 20090406
  Receipt Date: 20090330
  Transmission Date: 20091009
  Serious: Yes (Death, Life-Threatening, Disabling, Other)
  Sender: FDA-Public Use
  Company Number: PHHY2009JP12454

PATIENT
  Sex: Male

DRUGS (16)
  1. TASIGNA [Suspect]
     Indication: CHRONIC MYELOID LEUKAEMIA
     Dosage: 400 MG/DAY
     Route: 048
     Dates: start: 20090313, end: 20090313
  2. TASIGNA [Suspect]
     Dosage: 800 MG/DAY
     Route: 048
     Dates: start: 20090314, end: 20090325
  3. FUROSEMIDE [Suspect]
     Dosage: 20 MG/DAY
     Route: 042
     Dates: start: 20090307, end: 20090319
  4. FUROSEMIDE [Suspect]
     Dosage: 40 MG/DAY
     Route: 042
     Dates: start: 20090320, end: 20090323
  5. FUROSEMIDE [Suspect]
     Dosage: 100 MG/DAY
     Route: 042
     Dates: start: 20090324
  6. SOLU-MEDROL [Suspect]
     Indication: CHRONIC MYELOID LEUKAEMIA
     Dosage: 500 MG/DAY
     Route: 042
     Dates: start: 20090325
  7. CYLOCIDE [Concomitant]
     Indication: CHRONIC MYELOID LEUKAEMIA
     Dosage: 4 G
     Route: 042
     Dates: start: 20090213
  8. CYLOCIDE [Concomitant]
     Dosage: 140 MG
     Route: 042
  9. CYLOCIDE [Concomitant]
     Dosage: 140 MG
     Route: 042
     Dates: end: 20090312
  10. NOVANTRONE [Concomitant]
     Indication: CHRONIC MYELOID LEUKAEMIA
     Dosage: 14 MG
     Route: 042
     Dates: start: 20090218
  11. NOVANTRONE [Concomitant]
     Dosage: 14 MG
     Route: 042
     Dates: end: 20090312
  12. LASTET [Concomitant]
     Indication: CHRONIC MYELOID LEUKAEMIA
     Dosage: 180 MG
     Route: 042
     Dates: start: 20090218
  13. LASTET [Concomitant]
     Dosage: 180 MG
     Route: 042
     Dates: end: 20090312
  14. FUNGUARD [Concomitant]
     Dosage: 150 MG
     Route: 042
     Dates: start: 20090326
  15. OMEGACIN [Concomitant]
     Dosage: 0.9 G
     Route: 042
     Dates: start: 20090303, end: 20090329
  16. TARGOCID [Concomitant]
     Dosage: 400 MG
     Route: 042
     Dates: start: 20090305, end: 20090329

REACTIONS (10)
  - ALTERED STATE OF CONSCIOUSNESS [None]
  - ANAEMIA [None]
  - ASCITES [None]
  - BLAST CRISIS IN MYELOGENOUS LEUKAEMIA [None]
  - BLOOD UREA INCREASED [None]
  - HEPATIC FUNCTION ABNORMAL [None]
  - HYPOKALAEMIA [None]
  - MALIGNANT NEOPLASM PROGRESSION [None]
  - PLATELET COUNT DECREASED [None]
  - PLEURAL EFFUSION [None]
